FAERS Safety Report 21728564 (Version 4)
Quarter: 2023Q1

REPORT INFORMATION
  Report Type: Report from Study
  Country: JP (occurrence: JP)
  Receive Date: 20221214
  Receipt Date: 20230106
  Transmission Date: 20230417
  Serious: Yes (Hospitalization)
  Sender: FDA-Public Use
  Company Number: JP-Eisai-202212055_PENT_C_1

PATIENT
  Age: 74 Year
  Sex: Male
  Weight: 54 kg

DRUGS (18)
  1. E-7386 [Suspect]
     Active Substance: E-7386
     Indication: Hepatocellular carcinoma
     Route: 048
     Dates: start: 20221104, end: 20221207
  2. E-7386 [Suspect]
     Active Substance: E-7386
     Route: 048
     Dates: start: 20230105
  3. LENVATINIB [Suspect]
     Active Substance: LENVATINIB
     Indication: Hepatocellular carcinoma
     Route: 048
     Dates: start: 20221109, end: 20221207
  4. LENVATINIB [Suspect]
     Active Substance: LENVATINIB
     Dosage: REDUCED DOSE (DOSE UNKNOWN)
     Route: 048
     Dates: start: 20230105
  5. THEOPHYLLINE ANHYDROUS [Concomitant]
     Active Substance: THEOPHYLLINE ANHYDROUS
     Indication: Asthma
     Route: 048
     Dates: start: 2002
  6. PROCATEROL HYDROCHLORIDE [Concomitant]
     Active Substance: PROCATEROL HYDROCHLORIDE
     Indication: Asthma
     Route: 048
     Dates: start: 2002
  7. PROCATEROL HYDROCHLORIDE [Concomitant]
     Active Substance: PROCATEROL HYDROCHLORIDE
     Indication: Asthma
     Route: 048
     Dates: start: 2002
  8. FLAVOXATE [Concomitant]
     Active Substance: FLAVOXATE
     Indication: Hypertonic bladder
     Route: 048
     Dates: start: 2002
  9. VESICARE [Concomitant]
     Active Substance: SOLIFENACIN SUCCINATE
     Indication: Hypertonic bladder
     Route: 048
     Dates: start: 2002
  10. SINGULAIR [Concomitant]
     Active Substance: MONTELUKAST SODIUM
     Indication: Asthma
     Route: 048
     Dates: start: 2002
  11. REBAMIPIDE [Concomitant]
     Active Substance: REBAMIPIDE
     Indication: Gastric ulcer
     Route: 048
     Dates: start: 2002
  12. CHOREITO [Concomitant]
     Indication: Hypertonic bladder
     Route: 048
     Dates: start: 2002
  13. DUTASTERIDE [Concomitant]
     Active Substance: DUTASTERIDE
     Indication: Benign prostatic hyperplasia
     Route: 048
     Dates: start: 2002
  14. VONOPRAZAN FUMARATE [Concomitant]
     Active Substance: VONOPRAZAN FUMARATE
     Indication: Gastric ulcer
     Route: 048
     Dates: start: 2002
  15. SILODOSIN [Concomitant]
     Active Substance: SILODOSIN
     Indication: Benign prostatic hyperplasia
     Route: 048
     Dates: start: 2002
  16. ASCLON [Concomitant]
     Indication: Asthma
     Route: 048
     Dates: start: 2002
  17. DENOSUMAB [Concomitant]
     Active Substance: DENOSUMAB
     Indication: Metastases to bone
     Route: 042
     Dates: start: 20221014
  18. LOXOPROFEN SODIUM [Concomitant]
     Active Substance: LOXOPROFEN SODIUM
     Indication: Pyrexia
     Route: 048
     Dates: start: 20221112

REACTIONS (2)
  - Disseminated intravascular coagulation [Recovered/Resolved]
  - Sepsis [Recovering/Resolving]

NARRATIVE: CASE EVENT DATE: 20221208
